FAERS Safety Report 9345091 (Version 2)
Quarter: 2013Q3

REPORT INFORMATION
  Report Type: Spontaneous
  Country: US (occurrence: US)
  Receive Date: 20130612
  Receipt Date: 20130805
  Transmission Date: 20140515
  Serious: Yes (Other)
  Sender: FDA-Public Use
  Company Number: CHPA2010US17250

PATIENT
  Age: 75 Year
  Sex: Female

DRUGS (4)
  1. VOLTAREN GEL [Suspect]
     Indication: OSTEOARTHRITIS
     Dosage: 4 G, UNK
     Route: 061
  2. VOLTAREN GEL [Suspect]
     Indication: ARTHRALGIA
     Dosage: UNK, UNK
     Route: 061
     Dates: end: 2009
  3. CELEBREX [Concomitant]
     Indication: ARTHRITIS
     Dosage: 1DF, QD
     Route: 048
  4. ICY HOT [Concomitant]
     Indication: ARTHRITIS
     Dosage: UNK, UNK

REACTIONS (4)
  - Cataract [Unknown]
  - Off label use [Unknown]
  - Wrong technique in drug usage process [Unknown]
  - Intentional drug misuse [Unknown]
